FAERS Safety Report 21683324 (Version 2)
Quarter: 2022Q4

REPORT INFORMATION
  Report Type: Report from Study
  Country: US (occurrence: US)
  Receive Date: 20221205
  Receipt Date: 20221209
  Transmission Date: 20230113
  Serious: Yes (Hospitalization, Other)
  Sender: FDA-Public Use
  Company Number: US-ABBVIE-4223797

PATIENT
  Sex: Male
  Weight: 84 kg

DRUGS (2)
  1. IMBRUVICA [Suspect]
     Active Substance: IBRUTINIB
     Indication: Chronic lymphocytic leukaemia
     Route: 048
     Dates: start: 2018, end: 2022
  2. IMBRUVICA [Suspect]
     Active Substance: IBRUTINIB
     Indication: Chronic lymphocytic leukaemia
     Route: 048
     Dates: start: 2022, end: 20221108

REACTIONS (9)
  - Cardiac failure congestive [Recovered/Resolved]
  - Pulmonary oedema [Recovered/Resolved]
  - Constipation [Recovered/Resolved]
  - Atrial fibrillation [Recovered/Resolved]
  - COVID-19 [Recovering/Resolving]
  - Dyspnoea [Not Recovered/Not Resolved]
  - Decreased appetite [Recovered/Resolved]
  - Weight decreased [Recovered/Resolved]
  - Pneumonia [Recovered/Resolved]

NARRATIVE: CASE EVENT DATE: 20180101
